FAERS Safety Report 9812603 (Version 2)
Quarter: 2014Q1

REPORT INFORMATION
  Report Type: Spontaneous
  Country: JP (occurrence: JP)
  Receive Date: 20140113
  Receipt Date: 20140122
  Transmission Date: 20141002
  Serious: No
  Sender: FDA-Public Use
  Company Number: JP-SHIRE-ALL1-2014-00155

PATIENT
  Age: 58 Year
  Sex: Male

DRUGS (1)
  1. FOSRENOL [Suspect]
     Indication: HYPERPHOSPHATAEMIA
     Dosage: 750 MG, OTHER (DAILY DOSE)
     Route: 048

REACTIONS (2)
  - Aspiration [Recovered/Resolved]
  - Wrong technique in drug usage process [Unknown]
